FAERS Safety Report 6201226-7 (Version None)
Quarter: 2009Q2

REPORT INFORMATION
  Report Type: 
  Country: None (occurrence: None)
  Receive Date: 20090526
  Receipt Date: 20090519
  Transmission Date: 20091009
  Serious: Yes (Hospitalization)
  Sender: FDA-Public Use
  Company Number: BE-JNJFOC-20090105157

PATIENT
  Sex: Male

DRUGS (4)
  1. RISPERDAL [Suspect]
     Indication: DRUG USE FOR UNKNOWN INDICATION
     Route: 065
  2. HALDOL DECANOAS [Suspect]
     Route: 030
  3. HALDOL DECANOAS [Suspect]
     Indication: DRUG USE FOR UNKNOWN INDICATION
     Route: 030
  4. TRAZOLAN [Suspect]
     Indication: DRUG USE FOR UNKNOWN INDICATION
     Dosage: HALF A TABLET OF TRAZOLAN PER MONTH
     Route: 065

REACTIONS (3)
  - EXTRAPYRAMIDAL DISORDER [None]
  - PANCREATITIS [None]
  - TREATMENT NONCOMPLIANCE [None]
